FAERS Safety Report 14934504 (Version 1)
Quarter: 2018Q2

REPORT INFORMATION
  Report Type: Report from Study
  Country: US (occurrence: US)
  Receive Date: 20180524
  Receipt Date: 20180524
  Transmission Date: 20180711
  Serious: Yes (Death)
  Sender: FDA-Public Use
  Company Number: US-EXELIXIS-CABO-17011646

PATIENT
  Sex: Male

DRUGS (1)
  1. CABOMETYX [Suspect]
     Active Substance: CABOZANTINIB S-MALATE
     Indication: PROSTATE CANCER
     Dosage: 40 MG, QOD
     Route: 048

REACTIONS (6)
  - Metastases to bladder [Unknown]
  - Metastases to lung [Unknown]
  - Death [Fatal]
  - Metastases to bone [Unknown]
  - Metastases to liver [Unknown]
  - Product use in unapproved indication [Unknown]
